FAERS Safety Report 11195052 (Version 4)
Quarter: 2021Q3

REPORT INFORMATION
  Report Type: Spontaneous
  Country: GB (occurrence: GB)
  Receive Date: 20150617
  Receipt Date: 20210720
  Transmission Date: 20211014
  Serious: Yes (Hospitalization)
  Sender: FDA-Public Use
  Company Number: GB-ACCORD-031339

PATIENT
  Age: 73 Year
  Sex: Female

DRUGS (30)
  1. BENDROFLUMETHIAZIDE [Concomitant]
     Active Substance: BENDROFLUMETHIAZIDE
     Dosage: INITIALLY RECEIVED 2.5 MG OD FROM MAY?1998 TO 12?JUN?2013 AND FROM 14?JUN?2013 TO 25?JUN?2013 (11D).
     Dates: start: 20130702, end: 20130710
  2. METOCLOPRAMIDE. [Concomitant]
     Active Substance: METOCLOPRAMIDE
     Dates: start: 20130113, end: 20130114
  3. TRAMADOL. [Concomitant]
     Active Substance: TRAMADOL
     Dates: start: 20121101
  4. AMOXICILLIN. [Concomitant]
     Active Substance: AMOXICILLIN
     Dates: start: 20130213, end: 20130219
  5. DIFFLAM [Concomitant]
     Dates: start: 201212
  6. AZOPT [Concomitant]
     Active Substance: BRINZOLAMIDE
     Dosage: 10 MG/ML.?TOTAL DAILY DOSE: 1 GTT RIGHT EYE (1 DROP TWICE DAILY)
     Dates: start: 20120110
  7. OPTIVE [Concomitant]
     Active Substance: CARBOXYMETHYLCELLULOSE SODIUM\GLYCERIN
     Dosage: DAILY DOSE: 10 ML 1 DROPS
     Dates: start: 20130724
  8. CLARITHROMYCIN/CLARITHROMYCIN LACTOBIONATE [Concomitant]
     Active Substance: CLARITHROMYCIN LACTOBIONATE
     Dates: start: 20130227, end: 20130305
  9. GANFORT [Concomitant]
     Active Substance: BIMATOPROST\TIMOLOL
     Dosage: 1 DROP 3 ML AT NIGHT
     Dates: start: 20090731
  10. METRONIDAZOLE. [Concomitant]
     Active Substance: METRONIDAZOLE
     Dates: start: 20130508, end: 20130515
  11. PARACETAMOL [Concomitant]
     Active Substance: ACETAMINOPHEN
     Dosage: TOTAL DAILY DOSE: 500 MG AS REQUIRED
     Dates: start: 20121101
  12. PERINDOPRIL/PERINDOPRIL ERBUMINE [Concomitant]
     Active Substance: PERINDOPRIL ERBUMINE
     Dates: start: 200806, end: 20130612
  13. SANDO K [Concomitant]
     Dosage: INITIALLY RECEIVED 1 DF TABLET FROM 19?APR?2013 TO 23?APR?2013 (4 D)
     Dates: start: 20130911, end: 20130916
  14. PERTUZUMAB. [Suspect]
     Active Substance: PERTUZUMAB
     Indication: HER2 POSITIVE BREAST CANCER
     Dosage: LOADING DOSE.?INITIALLY RECEIVED LOADING DOSE 840 MG ONE CYCLE ON 06?DEC?2012.
     Route: 042
     Dates: start: 20121227
  15. AUGMENTIN [Concomitant]
     Active Substance: AMOXICILLIN\CLAVULANATE POTASSIUM
     Dates: start: 20130412, end: 20130418
  16. SIMVASTATIN. [Concomitant]
     Active Substance: SIMVASTATIN
     Dates: start: 201112
  17. LANSOPRAZOLE. [Concomitant]
     Active Substance: LANSOPRAZOLE
     Dates: start: 20130122
  18. XELODA [Suspect]
     Active Substance: CAPECITABINE
     Indication: PRODUCT USED FOR UNKNOWN INDICATION
     Dosage: 1000 MG
     Dates: start: 20130827
  19. FUROSEMIDE. [Concomitant]
     Active Substance: FUROSEMIDE
     Dates: start: 20130716
  20. LACTULOSE. [Concomitant]
     Active Substance: LACTULOSE
     Dates: start: 20130703
  21. SENNA ALEXANDRINA [Concomitant]
     Active Substance: SENNA LEAF
     Dates: start: 20130118, end: 20130118
  22. TRIMETHOPRIM/TRIMETHOPRIM LACTATE/TRIMETHOPRIM SULFATE [Concomitant]
     Active Substance: TRIMETHOPRIM
     Dosage: INITIALLY RECEIVED FROM 22?JAN?2013
     Dates: start: 20130913, end: 20130916
  23. ZOMORPH [Concomitant]
     Active Substance: MORPHINE SULFATE
     Dosage: RECEIVED FROM 02?JAN?2011 TO 22?JAN?2013 (752 DAYS), 30 MG BD FROM 18?JAN?2013 TO 22?JAN?2013, 5 DAY
     Dates: start: 20130814
  24. HERCEPTIN [Suspect]
     Active Substance: TRASTUZUMAB
     Indication: HER2 POSITIVE BREAST CANCER
     Dosage: MAINTENANCE DOSE.?RECEIVED LOADING DOSE AT 8MG/KG CYCLIC ON 06?DEC?2012.
     Route: 042
     Dates: start: 20121227
  25. LANSOPRAZOLE. [Concomitant]
     Active Substance: LANSOPRAZOLE
     Dates: start: 20130724
  26. LOPERAMIDE [Concomitant]
     Active Substance: LOPERAMIDE
     Dosage: INITIALLY RECEIVED FROM 14?DEC?2012. ?ALSO RECEIVED FROM 10?SEP?2013.
     Dates: start: 201306
  27. PACLITAXEL/PACLITAXEL LIPOSOME [Suspect]
     Active Substance: PACLITAXEL
     Indication: HER2 POSITIVE BREAST CANCER
     Dosage: MOST RECENT DOSE PRIOR TO SAE: 12?APR?2013
     Dates: start: 20121221
  28. LAPATINIB/LAPATINIB DITOSYLATE [Suspect]
     Active Substance: LAPATINIB
     Indication: PRODUCT USED FOR UNKNOWN INDICATION
     Dosage: STOPPED AND RESTARTED WITH REDUCED DOSE OF 750 MG ON 24?SEP?2013.
     Dates: start: 20130827, end: 20130923
  29. DEXAMETHASONE. [Concomitant]
     Active Substance: DEXAMETHASONE
     Dosage: INITIALLY RECEIVED FROM 07?JUN?2013 TO 20?AUG?2013 (74 DAYS).
     Dates: start: 20130821, end: 20131001
  30. FLUOXETINE [Concomitant]
     Active Substance: FLUOXETINE HYDROCHLORIDE
     Dosage: INITIALLY RECEIVED OD FROM 01?NOV?2012 TO 21?DEC?2012, UNKNOWN DOSE FROM 02?APR?2013.
     Dates: start: 20130801

REACTIONS (1)
  - Diarrhoea [Recovered/Resolved]

NARRATIVE: CASE EVENT DATE: 20130909
